FAERS Safety Report 8790830 (Version 1)
Quarter: 2012Q4

REPORT INFORMATION
  Report Type: Spontaneous
  Country: BR (occurrence: None)
  Receive Date: 20120910
  Receipt Date: 20120910
  Transmission Date: 20130627
  Serious: Yes (Other)
  Sender: FDA-Public Use
  Company Number: BR-JNJFOC-20120815185

PATIENT
  Age: 57 Year
  Sex: Male

DRUGS (1)
  1. DECITABINE [Suspect]
     Indication: CHRONIC MYELOMONOCYTIC LEUKAEMIA

REACTIONS (3)
  - Febrile neutropenia [None]
  - Acute myeloid leukaemia [None]
  - Sepsis [None]
